FAERS Safety Report 20550120 (Version 2)
Quarter: 2022Q4

REPORT INFORMATION
  Report Type: Spontaneous
  Country: GB (occurrence: GB)
  Receive Date: 20220304
  Receipt Date: 20221006
  Transmission Date: 20230113
  Serious: Yes (Hospitalization)
  Sender: FDA-Public Use
  Company Number: GB-PFIZER INC-202200216272

PATIENT
  Age: 50 Year
  Sex: Male
  Weight: 77.6 kg

DRUGS (4)
  1. GEMCITABINE [Suspect]
     Active Substance: GEMCITABINE
     Indication: Bladder transitional cell carcinoma
     Dosage: 1900 MG, C1D1, C1D8
     Route: 042
     Dates: start: 20220121
  2. BCG VACCINE [Suspect]
     Active Substance: BCG VACCINE
     Indication: Bladder transitional cell carcinoma
     Dosage: UNK
     Route: 043
     Dates: start: 20210708, end: 20210812
  3. CISPLATIN [Suspect]
     Active Substance: CISPLATIN
     Indication: Bladder transitional cell carcinoma
     Dosage: 128 MG, C1D1
     Route: 042
     Dates: start: 20220121
  4. SASANLIMAB [Suspect]
     Active Substance: SASANLIMAB
     Indication: Bladder transitional cell carcinoma
     Dosage: UNK
     Route: 058
     Dates: start: 20210708, end: 20210805

REACTIONS (1)
  - Neutropenic sepsis [Not Recovered/Not Resolved]

NARRATIVE: CASE EVENT DATE: 20220131
